FAERS Safety Report 16644362 (Version 1)
Quarter: 2019Q3

REPORT INFORMATION
  Report Type: Spontaneous
  Country: GB (occurrence: GB)
  Receive Date: 20190729
  Receipt Date: 20190729
  Transmission Date: 20191004
  Serious: Yes (Other)
  Sender: FDA-Public Use
  Company Number: GB-NOVOPROD-674723

PATIENT
  Sex: Female
  Weight: 51.2 kg

DRUGS (1)
  1. KLIOFEM [Suspect]
     Active Substance: ESTRADIOL\NORETHINDRONE ACETATE
     Indication: HORMONE REPLACEMENT THERAPY
     Dosage: UNK
     Route: 065
     Dates: start: 20190516

REACTIONS (3)
  - Endometriosis [Unknown]
  - Condition aggravated [Unknown]
  - Intentional product misuse [Unknown]
